FAERS Safety Report 5121197-4 (Version None)
Quarter: 2006Q4

REPORT INFORMATION
  Report Type: 
  Country: None (occurrence: None)
  Receive Date: 20061002
  Receipt Date: 20060915
  Transmission Date: 20070319
  Serious: Yes (Other)
  Sender: FDA-Public Use
  Company Number: US200609004286

PATIENT
  Age: 87 Year
  Sex: Female

DRUGS (2)
  1. FORTEO [Suspect]
     Dates: start: 20050901
  2. FORTEO [Concomitant]

REACTIONS (2)
  - MALIGNANT MELANOMA [None]
  - PHARMACEUTICAL PRODUCT COMPLAINT [None]
